FAERS Safety Report 7768137 (Version 5)
Quarter: 2014Q2

REPORT INFORMATION
  Report Type: Spontaneous
  Country: US (occurrence: US)
  Receive Date: 20110121
  Receipt Date: 20140410
  Transmission Date: 20141212
  Serious: Yes (Other)
  Sender: FDA-Public Use
  Company Number: US-BAYER-2011-006484

PATIENT
  Age: 37 Year
  Sex: Female
  Weight: 90.25 kg

DRUGS (4)
  1. YASMIN [Suspect]
     Indication: ORAL CONTRACEPTION
     Dosage: UNK
     Route: 048
     Dates: start: 20090605, end: 20090807
  2. YAZ [Suspect]
     Indication: ORAL CONTRACEPTION
     Dosage: UNK
     Dates: start: 20090605, end: 20090807
  3. IBUPROFEN [Concomitant]
     Dosage: UNK
     Dates: start: 2009
  4. NAPROXEN [Concomitant]
     Dosage: UNK
     Dates: start: 2009

REACTIONS (8)
  - Gallbladder disorder [None]
  - Cholelithiasis [None]
  - Gallbladder pain [None]
  - Abdominal pain upper [None]
  - Uterine leiomyoma [None]
  - Gastrooesophageal reflux disease [None]
  - Diarrhoea [None]
  - Abdominal pain upper [None]
